FAERS Safety Report 17202776 (Version 1)
Quarter: 2019Q4

REPORT INFORMATION
  Report Type: Spontaneous
  Country: US (occurrence: US)
  Receive Date: 20191226
  Receipt Date: 20191226
  Transmission Date: 20200122
  Serious: No
  Sender: FDA-Public Use
  Company Number: US-BIOGEN-2019BI00699720

PATIENT
  Sex: Female

DRUGS (1)
  1. TECFIDERA [Suspect]
     Active Substance: DIMETHYL FUMARATE
     Indication: MULTIPLE SCLEROSIS
     Route: 050
     Dates: start: 20190130, end: 20190201

REACTIONS (5)
  - Pruritus [Recovered/Resolved]
  - Chest discomfort [Unknown]
  - Rash papular [Unknown]
  - Hypoaesthesia oral [Unknown]
  - Flushing [Recovered/Resolved]
